FAERS Safety Report 6963958-2 (Version None)
Quarter: 2010Q3

REPORT INFORMATION
  Report Type: 
  Country: None (occurrence: None)
  Receive Date: 20100902
  Receipt Date: 20100902
  Transmission Date: 20110219
  Serious: No
  Sender: FDA-Public Use
  Company Number: None

PATIENT
  Sex: Male
  Weight: 117.4816 kg

DRUGS (2)
  1. FLOMAX [Suspect]
     Indication: BENIGN PROSTATIC HYPERPLASIA
     Dosage: 0.4 QD PO ; 0.4 BID PO
     Route: 048
     Dates: start: 20100501
  2. FLOMAX [Suspect]
     Indication: NOCTURIA
     Dosage: 0.4 QD PO ; 0.4 BID PO
     Route: 048
     Dates: start: 20100501

REACTIONS (3)
  - DRUG INTOLERANCE [None]
  - NOCTURIA [None]
  - PRODUCT SUBSTITUTION ISSUE [None]
